FAERS Safety Report 4889555-0 (Version None)
Quarter: 2006Q1

REPORT INFORMATION
  Report Type: 
  Country: None (occurrence: None)
  Receive Date: 20060120
  Receipt Date: 20060120
  Transmission Date: 20060701
  Serious: No
  Sender: FDA-Public Use
  Company Number: None

PATIENT
  Age: 33 Year
  Sex: Female

DRUGS (17)
  1. ETANERCEPT 25MG/VIAL AMGEN - WYETH [Suspect]
     Indication: ARTHRITIS
     Dosage: 25MG TWICE A WEEK SQ
     Route: 058
     Dates: start: 20051121, end: 20051121
  2. TIMOLOL MALEATE [Concomitant]
  3. ISONIAZID [Concomitant]
  4. PYRIDOXINE VIT-B-6 [Concomitant]
  5. DIPHENHYDRAMINE [Concomitant]
  6. METHYLPREDNISOLONE [Concomitant]
  7. OMEPRAZOLE [Concomitant]
  8. PREDNISOLONE ACETATE--OPT 1% S [Concomitant]
  9. CITALOPRAM HYDROBROMIDE [Concomitant]
  10. OXYCODONE AND ACETAMINOPHEN [Concomitant]
  11. PROPOXYPHENE NAPSYL-DARVON [Concomitant]
  12. PREDNISONE [Concomitant]
  13. ETANERCEPT [Concomitant]
  14. NAPROXEN [Concomitant]
  15. MOTRIN [Concomitant]
  16. NAPROXEN [Concomitant]
  17. CYCLOBENZAPRINE HCL [Concomitant]

REACTIONS (13)
  - ACTIVITIES OF DAILY LIVING IMPAIRED [None]
  - ASTHENIA [None]
  - COGNITIVE DETERIORATION [None]
  - CONDITION AGGRAVATED [None]
  - DIPLOPIA [None]
  - DIZZINESS [None]
  - EYE PAIN [None]
  - GRANULOMA [None]
  - LETHARGY [None]
  - MOBILITY DECREASED [None]
  - RETINAL DISORDER [None]
  - SARCOIDOSIS [None]
  - VISION BLURRED [None]
